FAERS Safety Report 8327884 (Version 4)
Quarter: 2013Q4

REPORT INFORMATION
  Report Type: Spontaneous
  Country: FR (occurrence: FR)
  Receive Date: 20120109
  Receipt Date: 20131219
  Transmission Date: 20140711
  Serious: Yes (Hospitalization)
  Sender: FDA-Public Use
  Company Number: FR-ROCHE-1027634

PATIENT
  Age: 34 Year
  Sex: Female

DRUGS (8)
  1. ROCEPHINE [Suspect]
     Indication: PRODUCT USED FOR UNKNOWN INDICATION
     Route: 042
     Dates: start: 20110201, end: 20110211
  2. DALACINE [Suspect]
     Indication: PRODUCT USED FOR UNKNOWN INDICATION
     Route: 042
     Dates: start: 20110205, end: 20110211
  3. VANCOMYCINE [Suspect]
     Indication: PRODUCT USED FOR UNKNOWN INDICATION
     Route: 042
     Dates: start: 20110205, end: 20110211
  4. CIFLOX (FRANCE) [Suspect]
     Indication: PRODUCT USED FOR UNKNOWN INDICATION
     Route: 042
     Dates: start: 20110203, end: 20110205
  5. PYOSTACINE [Suspect]
     Indication: PRODUCT USED FOR UNKNOWN INDICATION
     Route: 042
     Dates: start: 20110203, end: 20110205
  6. HYDROCORTISONE [Concomitant]
     Route: 042
     Dates: start: 20110203
  7. PLAQUENIL [Concomitant]
     Dosage: PLAQUENIL 200
     Route: 065
     Dates: end: 20110201
  8. PLAQUENIL [Concomitant]
     Route: 065
     Dates: start: 20110304

REACTIONS (3)
  - Drug reaction with eosinophilia and systemic symptoms [Recovered/Resolved]
  - Pancreatitis acute [Recovered/Resolved]
  - Skin test negative [Unknown]
